FAERS Safety Report 13526637 (Version 1)
Quarter: 2017Q2

REPORT INFORMATION
  Report Type: Spontaneous
  Country: US (occurrence: US)
  Receive Date: 20170508
  Receipt Date: 20170508
  Transmission Date: 20170830
  Serious: No
  Sender: FDA-Public Use
  Company Number: None

PATIENT
  Age: 70 Year
  Sex: Female

DRUGS (1)
  1. HUMIRA [Suspect]
     Active Substance: ADALIMUMAB
     Indication: MALAISE
     Dosage: 40/0.8MG/ML EVERY 2 WEEKS SUBCUTANEOUSLY
     Route: 058
     Dates: start: 20170411

REACTIONS (3)
  - Sinusitis [None]
  - Inappropriate schedule of drug administration [None]
  - Ear infection [None]

NARRATIVE: CASE EVENT DATE: 20170414
